FAERS Safety Report 12315555 (Version 1)
Quarter: 2016Q2

REPORT INFORMATION
  Report Type: Spontaneous
  Country: US (occurrence: US)
  Receive Date: 20160428
  Receipt Date: 20160428
  Transmission Date: 20160815
  Serious: Yes (Other)
  Sender: FDA-Public Use
  Company Number: US-NOVAST LABORATORIES, LTD-US-2015NOV000041

PATIENT

DRUGS (1)
  1. LEVONORGESTREL\ETHINYL ESTRADIOL [Suspect]
     Active Substance: ETHINYL ESTRADIOL\LEVONORGESTREL
     Indication: PRODUCT USED FOR UNKNOWN INDICATION
     Dosage: DF

REACTIONS (1)
  - Drug-induced liver injury [Unknown]
